FAERS Safety Report 10347442 (Version 1)
Quarter: 2014Q3

REPORT INFORMATION
  Report Type: Spontaneous
  Country: BR (occurrence: BR)
  Receive Date: 20140729
  Receipt Date: 20140729
  Transmission Date: 20150326
  Serious: Yes (Other)
  Sender: FDA-Public Use
  Company Number: BR-PFIZER INC-2014206541

PATIENT
  Age: 85 Year
  Sex: Female
  Weight: 62 kg

DRUGS (11)
  1. XALATAN [Suspect]
     Active Substance: LATANOPROST
     Indication: GLAUCOMA
     Dosage: 1 DROP IN EACH EYE ONCE A DAY
     Route: 047
     Dates: start: 19830709
  2. ANGIPRESS [Concomitant]
     Active Substance: ATENOLOL
     Indication: CARDIAC DISORDER
     Dosage: 2 TABLETS DAILY
     Dates: start: 2008
  3. LIPITOR [Suspect]
     Active Substance: ATORVASTATIN CALCIUM
     Dosage: UNK
     Route: 048
  4. AAS [Concomitant]
     Active Substance: ASPIRIN
     Indication: CARDIAC DISORDER
     Dosage: 1 TABLET DAILY
     Dates: start: 2008
  5. RENITEC [Concomitant]
     Active Substance: ENALAPRIL MALEATE
     Indication: CARDIAC DISORDER
     Dosage: 1 TABLET DAILY
     Dates: start: 2008
  6. ZETIA [Concomitant]
     Active Substance: EZETIMIBE
     Indication: CARDIAC DISORDER
     Dosage: 1 TABLET DAILY
     Dates: start: 2008
  7. CITALOR [Suspect]
     Active Substance: ATORVASTATIN
     Indication: CARDIAC DISORDER
     Dosage: 1 TABLET A DAY
     Route: 048
  8. ANCORON [Concomitant]
     Active Substance: AMIODARONE HYDROCHLORIDE
     Indication: CARDIAC DISORDER
     Dosage: 1 TABLET A DAY
     Dates: start: 2008
  9. PLAVIX [Concomitant]
     Active Substance: CLOPIDOGREL BISULFATE
     Indication: CARDIAC DISORDER
     Dosage: 1 TABLET DAILY
     Dates: start: 2008
  10. ARTOGLICO [Concomitant]
     Indication: CARDIAC DISORDER
     Dosage: 1 TABLET A DAILY
     Dates: start: 2008
  11. CEWIN [Concomitant]
     Active Substance: ASCORBIC ACID
     Indication: CARDIAC DISORDER
     Dosage: 1 TABLET DAILY
     Dates: start: 2008

REACTIONS (6)
  - Cardiac disorder [Unknown]
  - Stubbornness [Unknown]
  - Product dropper issue [Unknown]
  - Activities of daily living impaired [Unknown]
  - Aggression [Unknown]
  - Incorrect dose administered [Unknown]

NARRATIVE: CASE EVENT DATE: 200807
